FAERS Safety Report 17808788 (Version 1)
Quarter: 2020Q2

REPORT INFORMATION
  Report Type: Spontaneous
  Country: CN (occurrence: CN)
  Receive Date: 20200520
  Receipt Date: 20200520
  Transmission Date: 20200714
  Serious: Yes (Hospitalization)
  Sender: FDA-Public Use
  Company Number: CN-NAPPMUNDI-GBR-2020-0076830

PATIENT
  Age: 73 Year
  Sex: Male
  Weight: 45 kg

DRUGS (1)
  1. OXYCONTIN [Suspect]
     Active Substance: OXYCODONE HYDROCHLORIDE
     Indication: ANALGESIC THERAPY
     Dosage: 30 MG, BID (STRENGTH 30MG)
     Route: 048
     Dates: start: 20200502, end: 20200509

REACTIONS (5)
  - Abdominal tenderness [Recovered/Resolved]
  - Abdominal distension [Recovering/Resolving]
  - Urinary retention [Recovering/Resolving]
  - Abdominal discomfort [Recovering/Resolving]
  - Dysuria [Recovering/Resolving]

NARRATIVE: CASE EVENT DATE: 20200507
